FAERS Safety Report 10165906 (Version 2)
Quarter: 2014Q2

REPORT INFORMATION
  Report Type: Spontaneous
  Country: US (occurrence: US)
  Receive Date: 20140510
  Receipt Date: 20140510
  Transmission Date: 20141212
  Serious: No
  Sender: FDA-Public Use
  Company Number: US-BRISTOL-MYERS SQUIBB COMPANY-18589226

PATIENT
  Age: 55 Year
  Sex: Female

DRUGS (4)
  1. BYDUREON 2MG VIAL + SYRINGE [Suspect]
     Indication: TYPE 2 DIABETES MELLITUS
     Dosage: LOT NO:73416 EXPDT:APR16
     Route: 058
     Dates: start: 201212
  2. METFORMIN [Concomitant]
  3. GLIPIZIDE [Concomitant]
  4. SYNTHROID [Concomitant]

REACTIONS (6)
  - Retching [Not Recovered/Not Resolved]
  - Nausea [Not Recovered/Not Resolved]
  - Vomiting [Not Recovered/Not Resolved]
  - Decreased appetite [Not Recovered/Not Resolved]
  - Product quality issue [Unknown]
  - Underdose [Unknown]
